FAERS Safety Report 5644950-7 (Version None)
Quarter: 2008Q1

REPORT INFORMATION
  Report Type: 
  Country: None (occurrence: None)
  Receive Date: 20080229
  Receipt Date: 20071127
  Transmission Date: 20080703
  Serious: No
  Sender: FDA-Public Use
  Company Number: A0694519A

PATIENT
  Age: 21 Year
  Sex: Female
  Weight: 49.1 kg

DRUGS (3)
  1. VALTREX [Suspect]
     Indication: HERPES VIRUS INFECTION
     Dosage: 500MG PER DAY
     Route: 048
  2. FAMVIR [Suspect]
  3. LEVLEN 28 [Concomitant]

REACTIONS (1)
  - HERPES VIRUS INFECTION [None]
